FAERS Safety Report 10687143 (Version 6)
Quarter: 2015Q2

REPORT INFORMATION
  Report Type: Report from Study
  Country: CA (occurrence: CA)
  Receive Date: 20150102
  Receipt Date: 20150504
  Transmission Date: 20150821
  Serious: Yes (Hospitalization)
  Sender: FDA-Public Use
  Company Number: CA-ROCHE-1175252

PATIENT
  Age: 81 Year
  Sex: Male
  Weight: 79.4 kg

DRUGS (10)
  1. RITUXAN [Suspect]
     Active Substance: RITUXIMAB
     Indication: RHEUMATOID ARTHRITIS
     Dosage: LAST DOSE OF RITUXAN RECEIVED 17/JUL/2013
     Route: 042
     Dates: start: 20111020
  2. SULFASALAZINE. [Concomitant]
     Active Substance: SULFASALAZINE
  3. CELEBREX [Concomitant]
     Active Substance: CELECOXIB
  4. PARIET [Concomitant]
     Active Substance: RABEPRAZOLE SODIUM
  5. BENADRYL [Concomitant]
     Active Substance: DIPHENHYDRAMINE HYDROCHLORIDE
     Indication: PREMEDICATION
     Route: 048
     Dates: start: 20111020
  6. METHYLPREDNISOLONE. [Concomitant]
     Active Substance: METHYLPREDNISOLONE
     Indication: PREMEDICATION
     Route: 042
     Dates: start: 20111020
  7. PREDNISONE. [Concomitant]
     Active Substance: PREDNISONE
     Dosage: 3-5 MG
     Route: 065
  8. ACETAMINOPHEN. [Concomitant]
     Active Substance: ACETAMINOPHEN
     Indication: PREMEDICATION
     Route: 048
     Dates: start: 20111020
  9. DIPHENHYDRAMINE HCL [Concomitant]
     Active Substance: DIPHENHYDRAMINE HYDROCHLORIDE
     Indication: PREMEDICATION
     Route: 048
     Dates: start: 20111020
  10. TYLENOL [Concomitant]
     Active Substance: ACETAMINOPHEN
     Indication: PREMEDICATION
     Route: 048
     Dates: start: 20111020

REACTIONS (10)
  - Musculoskeletal pain [Recovered/Resolved]
  - Blood pressure increased [Unknown]
  - Musculoskeletal stiffness [Recovered/Resolved]
  - Arthritis [Unknown]
  - Increased tendency to bruise [Recovered/Resolved]
  - Infusion related reaction [Unknown]
  - Haematoma [Unknown]
  - Arthralgia [Recovered/Resolved]
  - Transient ischaemic attack [Recovered/Resolved]
  - Joint swelling [Recovered/Resolved]

NARRATIVE: CASE EVENT DATE: 20121227
